FAERS Safety Report 19317287 (Version 2)
Quarter: 2021Q3

REPORT INFORMATION
  Report Type: Spontaneous
  Country: US (occurrence: US)
  Receive Date: 20210527
  Receipt Date: 20210805
  Transmission Date: 20211014
  Serious: No
  Sender: FDA-Public Use
  Company Number: US-PFIZER INC-2021454631

PATIENT
  Age: 73 Year
  Sex: Female
  Weight: 51.7 kg

DRUGS (10)
  1. IBRANCE [Suspect]
     Active Substance: PALBOCICLIB
     Indication: BREAST CANCER
     Dosage: 125 MG, DAILY [DAILY FOR 21 DAYS]
     Route: 048
     Dates: start: 20210331
  2. GLUCOSAMINE + CHONDROITIN + MSM [Concomitant]
     Dosage: UNK
  3. FISH OIL [Concomitant]
     Active Substance: FISH OIL
     Dosage: UNK(100?150 MG CAPSULE)
  4. MULTIVITAMIN (16) [Concomitant]
     Active Substance: VITAMINS
     Dosage: UNK
  5. VITAMIN C [Concomitant]
     Active Substance: ASCORBIC ACID
     Dosage: 1000 MG
  6. BIOTIN [Concomitant]
     Active Substance: BIOTIN
     Dosage: 1 MG
  7. CALCIUM+D [Concomitant]
     Active Substance: CALCIUM\VITAMIN D
     Dosage: UNK(500?1000 MG TAB CHEW)
  8. AROMASIN [Concomitant]
     Active Substance: EXEMESTANE
     Dosage: 25 MG
  9. IBRANCE [Suspect]
     Active Substance: PALBOCICLIB
     Dosage: 125 MG, CYCLIC (DAILY FOR 21 DAYS)
     Route: 048
     Dates: start: 20210331
  10. ZINC. [Concomitant]
     Active Substance: ZINC
     Dosage: UNK

REACTIONS (9)
  - Fatigue [Unknown]
  - White blood cell count decreased [Unknown]
  - Asthenia [Unknown]
  - Nasopharyngitis [Unknown]
  - Red blood cell count decreased [Unknown]
  - Nausea [Unknown]
  - Decreased appetite [Unknown]
  - Diarrhoea [Unknown]
  - Platelet count decreased [Unknown]
